FAERS Safety Report 14773584 (Version 1)
Quarter: 2018Q2

REPORT INFORMATION
  Report Type: Spontaneous
  Country: DE (occurrence: DE)
  Receive Date: 20180418
  Receipt Date: 20180418
  Transmission Date: 20180711
  Serious: Yes (Other)
  Sender: FDA-Public Use
  Company Number: DE-ASTRAZENECA-2018SE45864

PATIENT
  Age: 36 Year
  Sex: Female
  Weight: 70 kg

DRUGS (5)
  1. VIGANTOLETTEN [Concomitant]
     Active Substance: CHOLECALCIFEROL
     Indication: PROPHYLAXIS
     Dosage: 500 IU, DAILY, 0. - 40. GESTATIONAL WEEK
     Route: 048
     Dates: start: 20161102, end: 20170809
  2. FOLIO JODFREI [Concomitant]
     Indication: PROPHYLAXIS OF NEURAL TUBE DEFECT
     Dosage: 0.4 MG,  DAILY, 6.1. - 40. GESTATIONAL WEEK
     Route: 048
  3. EUTHYROX [Concomitant]
     Active Substance: LEVOTHYROXINE SODIUM
     Indication: AUTOIMMUNE THYROIDITIS
     Dosage: 175 UG/INHAL  DAILY, 0. - 40. GESTATIONAL WEEK
     Route: 048
     Dates: start: 20161102, end: 20170809
  4. SEROQUEL XR [Suspect]
     Active Substance: QUETIAPINE FUMARATE
     Indication: BIPOLAR DISORDER
     Dosage: 800 MG/DAILY, 0. - 40. GESTATIONAL WEEK
     Route: 048
     Dates: start: 20161102
  5. SEROQUEL XR [Suspect]
     Active Substance: QUETIAPINE FUMARATE
     Indication: BIPOLAR DISORDER
     Dosage: 2X 300MG/DAILY FROM WEEK 19+6, 0. - 40. GESTATIONAL WEEK
     Route: 048
     Dates: end: 20170809

REACTIONS (2)
  - Exposure during pregnancy [Recovered/Resolved]
  - Gestational diabetes [Recovered/Resolved]
